FAERS Safety Report 8393157-1 (Version None)
Quarter: 2012Q2

REPORT INFORMATION
  Report Type: 
  Country: None (occurrence: None)
  Receive Date: 20120529
  Receipt Date: 20120503
  Transmission Date: 20120825
  Serious: No
  Sender: FDA-Public Use
  Company Number: US-ABBOTT-12P-163-0932493-00

PATIENT
  Sex: Male
  Weight: 81.72 kg

DRUGS (5)
  1. CITALOPRAM [Concomitant]
     Indication: PRODUCT USED FOR UNKNOWN INDICATION
  2. MELOXICAM [Concomitant]
     Indication: PRODUCT USED FOR UNKNOWN INDICATION
  3. ANDROGEL [Suspect]
     Indication: BLOOD TESTOSTERONE DECREASED
     Dosage: 2 PUMPS PER DAY
     Dates: start: 20120101
  4. ZOCOR [Concomitant]
     Indication: BLOOD CHOLESTEROL
  5. LEVOTHROID [Concomitant]
     Indication: THYROID DISORDER

REACTIONS (1)
  - APPLICATION SITE PAPULES [None]
